FAERS Safety Report 13513231 (Version 1)
Quarter: 2017Q2

REPORT INFORMATION
  Report Type: Spontaneous
  Country: US (occurrence: US)
  Receive Date: 20170504
  Receipt Date: 20170504
  Transmission Date: 20170830
  Serious: Yes (Hospitalization)
  Sender: FDA-Public Use
  Company Number: None

PATIENT
  Age: 79 Year
  Sex: Female
  Weight: 96.9 kg

DRUGS (6)
  1. DOCUSATE [Concomitant]
     Active Substance: DOCUSATE
  2. SODIUM [Concomitant]
     Active Substance: SODIUM
  3. METOPROLOL TARTRATE. [Concomitant]
     Active Substance: METOPROLOL TARTRATE
  4. WARFARIN [Suspect]
     Active Substance: WARFARIN
     Indication: ATRIAL FIBRILLATION
     Route: 048
  5. PROPAFENONE. [Concomitant]
     Active Substance: PROPAFENONE
  6. WARFARIN [Suspect]
     Active Substance: WARFARIN
     Indication: ATRIAL FIBRILLATION
     Route: 048

REACTIONS (6)
  - International normalised ratio increased [None]
  - Ulcer [None]
  - Haematemesis [None]
  - Abdominal pain upper [None]
  - Gastritis erosive [None]
  - Hiatus hernia [None]

NARRATIVE: CASE EVENT DATE: 20161203
